FAERS Safety Report 11415150 (Version 2)
Quarter: 2017Q4

REPORT INFORMATION
  Report Type: Spontaneous
  Country: US (occurrence: US)
  Receive Date: 20150825
  Receipt Date: 20171003
  Transmission Date: 20180320
  Serious: Yes (Other)
  Sender: FDA-Public Use
  Company Number: US-ASTRAZENECA-2015SE79814

PATIENT
  Age: 27621 Day
  Sex: Female
  Weight: 75.8 kg

DRUGS (2)
  1. TUDORZA PRESSAIR [Suspect]
     Active Substance: ACLIDINIUM BROMIDE
     Indication: EMPHYSEMA
     Route: 055
  2. TUDORZA PRESSAIR [Suspect]
     Active Substance: ACLIDINIUM BROMIDE
     Indication: CHRONIC OBSTRUCTIVE PULMONARY DISEASE
     Route: 055

REACTIONS (7)
  - Osteoporosis [Unknown]
  - Cardiac failure congestive [Unknown]
  - Spinal disorder [Unknown]
  - Body height decreased [Unknown]
  - Drug dose omission [Unknown]
  - Arthritis [Unknown]
  - Product quality issue [Unknown]

NARRATIVE: CASE EVENT DATE: 20150816
